FAERS Safety Report 23820778 (Version 1)
Quarter: 2024Q2

REPORT INFORMATION
  Report Type: Spontaneous
  Country: FR (occurrence: FR)
  Receive Date: 20240506
  Receipt Date: 20240506
  Transmission Date: 20240716
  Serious: Yes (Death, Other)
  Sender: FDA-Public Use
  Company Number: FR-009507513-2404USA012605

PATIENT
  Age: 41 Year
  Sex: Male
  Weight: 63 kg

DRUGS (2)
  1. PEMBROLIZUMAB [Suspect]
     Active Substance: PEMBROLIZUMAB
     Indication: Bronchial carcinoma
     Dosage: 200 MILLIGRAM, BID
     Route: 042
     Dates: start: 20240209, end: 20240304
  2. KRAZATI [Suspect]
     Active Substance: ADAGRASIB
     Indication: Bronchial carcinoma
     Dosage: 1200 MILLIGRAM, QD
     Route: 048
     Dates: start: 20240312

REACTIONS (3)
  - Status epilepticus [Fatal]
  - Noninfective encephalitis [Fatal]
  - Product use issue [Unknown]

NARRATIVE: CASE EVENT DATE: 20240405
